FAERS Safety Report 4661716-5 (Version None)
Quarter: 2005Q2

REPORT INFORMATION
  Report Type: 
  Country: None (occurrence: None)
  Receive Date: 20050511
  Receipt Date: 20050511
  Transmission Date: 20051028
  Serious: Yes (Hospitalization, Other)
  Sender: FDA-Public Use
  Company Number: None

PATIENT
  Sex: Male
  Weight: 82.3 kg

DRUGS (3)
  1. TIROFIBAN [Suspect]
     Indication: ANGINA UNSTABLE
     Dosage: 0.4MCG UG/MIN X 30MIN IV THEN 0.1 MG/KG/MIN
     Route: 042
  2. TIROFIBAN [Suspect]
     Indication: ENZYME ABNORMALITY
     Dosage: 0.4MCG UG/MIN X 30MIN IV THEN 0.1 MG/KG/MIN
     Route: 042
  3. HEPARIN [Suspect]
     Dosage: 800 UNITS/HR

REACTIONS (3)
  - BLOOD PRESSURE DECREASED [None]
  - HAEMATOCRIT DECREASED [None]
  - RECTAL HAEMORRHAGE [None]
